FAERS Safety Report 20898500 (Version 1)
Quarter: 2022Q2

REPORT INFORMATION
  Report Type: Spontaneous
  Country: US (occurrence: US)
  Receive Date: 20220601
  Receipt Date: 20220601
  Transmission Date: 20220721
  Serious: No
  Sender: FDA-Public Use
  Company Number: US-drreddys-SPO/USA/22/0150571

PATIENT
  Age: 18 Year

DRUGS (1)
  1. ZENATANE [Suspect]
     Active Substance: ISOTRETINOIN
     Indication: Product used for unknown indication
     Dosage: RMA ISSUE DATE: 7 JANUARY 2022 04:59:21 PM, 7 FEBRUARY 2022 04:43:21 PM, 10 MARCH 2022 04:08:09 PM A

REACTIONS (1)
  - Treatment noncompliance [Unknown]
